FAERS Safety Report 8058129-5 (Version None)
Quarter: 2012Q1

REPORT INFORMATION
  Report Type: 
  Country: None (occurrence: None)
  Receive Date: 20120120
  Receipt Date: 20120105
  Transmission Date: 20120608
  Serious: Yes (Hospitalization, Other)
  Sender: FDA-Public Use
  Company Number: US-ELI_LILLY_AND_COMPANY-US201111005083

PATIENT
  Sex: Male

DRUGS (29)
  1. FUROSEMIDE [Concomitant]
     Dosage: 40 MG, UNK
  2. GABAPENTIN [Concomitant]
     Dosage: 300 MG, UNK
  3. TRIAMTERENE AND HYDROCHLOROTHIAZIDE [Concomitant]
     Dosage: UNK
  4. LEVETIRACETAM [Concomitant]
     Dosage: 500 MG, UNK
  5. HUMALOG [Suspect]
     Dosage: UNK
     Dates: end: 20110601
  6. COLCHICINE [Concomitant]
     Dosage: 6 MG, UNK
  7. ALLEGRA [Concomitant]
     Dosage: 180 MG, UNK
  8. LONOX [Concomitant]
     Dosage: UNK
  9. SYMLIN [Concomitant]
     Dosage: UNK
  10. ZETIA [Concomitant]
     Dosage: 10 MG, UNK
  11. ULORIC [Concomitant]
     Dosage: 40 MG, UNK
  12. CLOTRIMAZOLE [Concomitant]
     Dosage: UNK
  13. HUMULIN R [Suspect]
     Indication: TYPE 2 DIABETES MELLITUS
     Dosage: UNK, OTHER
     Route: 058
     Dates: start: 20110401
  14. COREG [Concomitant]
     Dosage: 25 MG, UNK
  15. KEPPRA [Concomitant]
     Dosage: UNK
  16. MULTI-VITAMINS [Concomitant]
     Dosage: UNK
  17. EUCERIN CREME [Concomitant]
     Dosage: 500 MG, UNK
  18. ACETAMINOPHEN [Concomitant]
     Dosage: 500 MG, UNK
  19. LOSARTAN POTASSIUM [Concomitant]
     Dosage: 25 MG, UNK
  20. LOVAZA [Concomitant]
     Dosage: 1 G, UNK
  21. OMEPRAZOLE [Concomitant]
     Dosage: 20 MG, UNK
  22. HYDROCHLOROTHIAZIDE [Concomitant]
     Dosage: UNK
  23. ASPIRIN [Concomitant]
     Dosage: 81 MG, UNK
  24. FLUTICASONE PROPIONATE [Concomitant]
     Dosage: 27.5 MG, UNK
  25. HYDROCODONE BITARTRATE [Concomitant]
     Dosage: UNK
  26. TRICOR [Concomitant]
     Dosage: 145 MG, UNK
  27. KLOR-CON [Concomitant]
     Dosage: UNK
  28. LEVOTHYROXINE SODIUM [Concomitant]
     Dosage: 25 DF, UNK
  29. C-PAP [Concomitant]
     Dosage: UNK

REACTIONS (6)
  - BLOOD GLUCOSE DECREASED [None]
  - OFF LABEL USE [None]
  - BLOOD GLUCOSE INCREASED [None]
  - DISORIENTATION [None]
  - CARDIAC PACEMAKER INSERTION [None]
  - DRUG INEFFECTIVE [None]
